FAERS Safety Report 6506002-3 (Version None)
Quarter: 2009Q4

REPORT INFORMATION
  Report Type: 
  Country: None (occurrence: None)
  Receive Date: 20091218
  Receipt Date: 20091207
  Transmission Date: 20100525
  Serious: Yes (Other)
  Sender: FDA-Public Use
  Company Number: US-PFIZER INC-2009301366

PATIENT
  Sex: Female
  Weight: 63.502 kg

DRUGS (3)
  1. CELEBREX [Suspect]
     Indication: ARTHRALGIA
     Dosage: 200 MG, 1X/DAY
     Route: 048
     Dates: start: 20091101, end: 20091101
  2. CELEBREX [Suspect]
     Indication: ARTHRITIS
  3. IBUPROFEN [Concomitant]
     Indication: ARTHRALGIA
     Dosage: 400 MG, 3X/DAY
     Dates: end: 20091112

REACTIONS (4)
  - ASTHENIA [None]
  - CHEST DISCOMFORT [None]
  - HEART RATE IRREGULAR [None]
  - OESOPHAGEAL SPASM [None]
